FAERS Safety Report 8837861 (Version 1)
Quarter: 2012Q4

REPORT INFORMATION
  Report Type: 
  Country: US (occurrence: US)
  Receive Date: 20121012
  Receipt Date: 20121012
  Transmission Date: 20130627
  Serious: Yes (Hospitalization)
  Sender: FDA-Public Use
  Company Number: US-BAYER-2012-104530

PATIENT
  Age: 32 Year
  Sex: Female

DRUGS (7)
  1. OCELLA [Suspect]
  2. YAZ [Suspect]
  3. LOESTRIN FE [Concomitant]
     Indication: CONTRACEPTION
  4. METFORMIN [Concomitant]
     Indication: ANGER
     Dosage: UNK
     Dates: start: 20100720
  5. NECON [Concomitant]
  6. ALLERGY MEDICATION [Concomitant]
  7. VITAMIN D [Concomitant]
     Dosage: UNK
     Dates: start: 20100720

REACTIONS (1)
  - Pulmonary embolism [None]
